FAERS Safety Report 21943394 (Version 4)
Quarter: 2023Q1

REPORT INFORMATION
  Report Type: Report from Study
  Country: US (occurrence: US)
  Receive Date: 20230202
  Receipt Date: 20230316
  Transmission Date: 20230418
  Serious: Yes (Other)
  Sender: FDA-Public Use
  Company Number: US-002147023-NVSC2023US018815

PATIENT
  Age: 71 Year
  Sex: Female

DRUGS (1)
  1. LEQVIO [Suspect]
     Active Substance: INCLISIRAN SODIUM
     Indication: Product used for unknown indication
     Dosage: UNK
     Route: 058
     Dates: start: 202212

REACTIONS (7)
  - Muscle rupture [Unknown]
  - Autoimmune thyroiditis [Unknown]
  - Renal failure [Unknown]
  - Basedow^s disease [Unknown]
  - Blood cholesterol decreased [Unknown]
  - Musculoskeletal discomfort [Unknown]
  - Fibromyalgia [Unknown]

NARRATIVE: CASE EVENT DATE: 20221201
